FAERS Safety Report 23675765 (Version 6)
Quarter: 2024Q2

REPORT INFORMATION
  Report Type: Report from Study
  Country: ES (occurrence: ES)
  Receive Date: 20240327
  Receipt Date: 20240416
  Transmission Date: 20240716
  Serious: Yes (Hospitalization)
  Sender: FDA-Public Use
  Company Number: ES-ABBVIE-5691197

PATIENT
  Age: 80 Year
  Sex: Female

DRUGS (2)
  1. CARBIDOPA\LEVODOPA [Suspect]
     Active Substance: CARBIDOPA\LEVODOPA
     Indication: Parkinson^s disease
     Route: 050
     Dates: start: 20190321
  2. CARBIDOPA\LEVODOPA [Suspect]
     Active Substance: CARBIDOPA\LEVODOPA

REACTIONS (10)
  - Abdominal rigidity [Recovering/Resolving]
  - Faecaloma [Unknown]
  - Unevaluable event [Unknown]
  - Swelling [Unknown]
  - Constipation [Recovering/Resolving]
  - Gastritis [Recovering/Resolving]
  - Fear [Unknown]
  - Colitis [Unknown]
  - Abdominal distension [Recovering/Resolving]
  - Ileus paralytic [Unknown]

NARRATIVE: CASE EVENT DATE: 20240301
